FAERS Safety Report 25776948 (Version 1)
Quarter: 2025Q3

REPORT INFORMATION
  Report Type: Spontaneous
  Country: US (occurrence: US)
  Receive Date: 20250909
  Receipt Date: 20250909
  Transmission Date: 20251020
  Serious: No
  Sender: DOMPE FARMACEUTICI
  Company Number: US-FARMAPROD-202409-3286

PATIENT
  Age: 82 Year
  Sex: Female

DRUGS (16)
  1. OXERVATE [Suspect]
     Active Substance: CENEGERMIN-BKBJ
     Indication: Neurotrophic keratopathy
     Route: 047
     Dates: start: 20240907
  2. OXERVATE [Suspect]
     Active Substance: CENEGERMIN-BKBJ
  3. OFLOXACIN [Concomitant]
     Active Substance: OFLOXACIN
  4. SYSTANE BALANCE [Concomitant]
     Active Substance: PROPYLENE GLYCOL
  5. THERATEARS [Concomitant]
     Active Substance: CARBOXYMETHYLCELLULOSE SODIUM
  6. VITAMIN B12 [Concomitant]
     Active Substance: CYANOCOBALAMIN
  7. ENZYME DIGEST [Concomitant]
  8. PROBIOTICS NOS [Concomitant]
     Active Substance: PROBIOTICS NOS
  9. HERBALS\TURMERIC [Concomitant]
     Active Substance: HERBALS\TURMERIC
  10. MAGNESIUM CITRATE [Concomitant]
     Active Substance: MAGNESIUM CITRATE
  11. CALCIUM\CHOLECALCIFEROL [Concomitant]
     Active Substance: CALCIUM\CHOLECALCIFEROL
  12. LORAZEPAM [Concomitant]
     Active Substance: LORAZEPAM
  13. DOXYCYCLINE HYCLATE [Concomitant]
     Active Substance: DOXYCYCLINE HYCLATE
  14. NEBIVOLOL [Concomitant]
     Active Substance: NEBIVOLOL
  15. METOPROLOL TARTRATE [Concomitant]
     Active Substance: METOPROLOL TARTRATE
  16. HYDRALAZINE HCL [Concomitant]
     Active Substance: HYDRALAZINE HYDROCHLORIDE

REACTIONS (7)
  - Eye irritation [Not Recovered/Not Resolved]
  - Ocular hyperaemia [Not Recovered/Not Resolved]
  - Eyelid pain [Not Recovered/Not Resolved]
  - Photophobia [Not Recovered/Not Resolved]
  - Eyelid irritation [Unknown]
  - Eye inflammation [Not Recovered/Not Resolved]
  - Off label use [Not Recovered/Not Resolved]

NARRATIVE: CASE EVENT DATE: 20240907
